FAERS Safety Report 14697771 (Version 1)
Quarter: 2018Q1

REPORT INFORMATION
  Report Type: Spontaneous
  Country: US (occurrence: US)
  Receive Date: 20180330
  Receipt Date: 20180330
  Transmission Date: 20180509
  Serious: No
  Sender: FDA-Public Use
  Company Number: US-SA-2018SA009910

PATIENT
  Age: 67 Year
  Sex: Male
  Weight: 261 kg

DRUGS (4)
  1. ULORIC [Concomitant]
     Active Substance: FEBUXOSTAT
     Indication: GOUT
     Route: 065
     Dates: start: 2010
  2. ALLEGRA ALLERGY [Suspect]
     Active Substance: FEXOFENADINE HYDROCHLORIDE
     Indication: HYPERSENSITIVITY
     Route: 048
     Dates: start: 1987, end: 20171103
  3. LEVOTHYROXINE. [Concomitant]
     Active Substance: LEVOTHYROXINE
     Indication: THYROID DISORDER
     Route: 065
     Dates: start: 2006
  4. FLUNISOLIDE. [Concomitant]
     Active Substance: FLUNISOLIDE
     Indication: NASAL DISORDER
     Dosage: DOSE-1 PUMPS
     Route: 065
     Dates: start: 2007

REACTIONS (3)
  - Withdrawal syndrome [Unknown]
  - Pruritus [Unknown]
  - Paraesthesia [Unknown]

NARRATIVE: CASE EVENT DATE: 200611
